FAERS Safety Report 8306155-0 (Version None)
Quarter: 2012Q2

REPORT INFORMATION
  Report Type: 
  Country: None (occurrence: None)
  Receive Date: 20120423
  Receipt Date: 20120410
  Transmission Date: 20120825
  Serious: Yes (Other)
  Sender: FDA-Public Use
  Company Number: FR-MYLANLABS-2012S1007602

PATIENT
  Age: 31 Year
  Sex: Female

DRUGS (4)
  1. CLONAZEPAM [Suspect]
     Dosage: 1MG
     Route: 042
  2. LOXAPINE [Suspect]
     Dosage: 3 X 50MG
     Route: 030
  3. HALOPERIDOL [Suspect]
     Dosage: 5MG
     Route: 065
  4. CLORAZEPATE DIPOTASSIUM [Suspect]
     Dosage: 50MG
     Route: 042

REACTIONS (1)
  - NEUROLEPTIC MALIGNANT SYNDROME [None]
